APPROVED DRUG PRODUCT: ORUVAIL
Active Ingredient: KETOPROFEN
Strength: 200MG **Federal Register determination that product was not discontinued or withdrawn for safety or effectiveness reasons**
Dosage Form/Route: CAPSULE, EXTENDED RELEASE;ORAL
Application: N019816 | Product #001
Applicant: WYETH PHARMACEUTICALS INC
Approved: Sep 24, 1993 | RLD: Yes | RS: No | Type: DISCN